FAERS Safety Report 16044154 (Version 2)
Quarter: 2019Q1

REPORT INFORMATION
  Report Type: Report from Study
  Country: US (occurrence: US)
  Receive Date: 20190306
  Receipt Date: 20190318
  Transmission Date: 20190418
  Serious: Yes (Hospitalization)
  Sender: FDA-Public Use
  Company Number: US-ACTELION-A-NJ2017-156363

PATIENT
  Age: 78 Year
  Sex: Female
  Weight: 58.5 kg

DRUGS (6)
  1. VELETRI [Suspect]
     Active Substance: EPOPROSTENOL
     Dosage: 40 NG/KG, PER MIN
     Route: 042
  2. LETAIRIS [Concomitant]
     Active Substance: AMBRISENTAN
  3. VELETRI [Suspect]
     Active Substance: EPOPROSTENOL
     Indication: PULMONARY HYPERTENSION
     Dosage: 36 NG/KG, PER MIN
     Route: 042
     Dates: end: 2019
  4. ADCIRCA [Concomitant]
     Active Substance: TADALAFIL
  5. VELETRI [Suspect]
     Active Substance: EPOPROSTENOL
     Dosage: 39 NG/KG, PER MIN
     Route: 042
  6. REMODULIN [Suspect]
     Active Substance: TREPROSTINIL
     Indication: PRODUCT USED FOR UNKNOWN INDICATION
     Dosage: UNK
     Route: 065

REACTIONS (28)
  - Myalgia [Unknown]
  - Pain [Not Recovered/Not Resolved]
  - Atrial fibrillation [Unknown]
  - Femoral neck fracture [Unknown]
  - Asthenia [Unknown]
  - Diarrhoea [Unknown]
  - Decreased activity [Unknown]
  - Nausea [Recovering/Resolving]
  - Gastrooesophageal reflux disease [Unknown]
  - Therapy change [Unknown]
  - Chest pain [Unknown]
  - Palpitations [Unknown]
  - Influenza like illness [Unknown]
  - Fluid retention [Unknown]
  - Pleural effusion [Recovered/Resolved]
  - Headache [Recovering/Resolving]
  - Peripheral swelling [Not Recovered/Not Resolved]
  - Fatigue [Unknown]
  - Decreased appetite [Unknown]
  - Irritable bowel syndrome [Unknown]
  - Dyspnoea [Unknown]
  - Dyspnoea exertional [Unknown]
  - Pain in jaw [Not Recovered/Not Resolved]
  - Weight decreased [Unknown]
  - Abdominal pain [Unknown]
  - Device occlusion [Unknown]
  - Fall [Unknown]
  - Rales [Not Recovered/Not Resolved]

NARRATIVE: CASE EVENT DATE: 20190222
